FAERS Safety Report 24200984 (Version 1)
Quarter: 2024Q3

REPORT INFORMATION
  Report Type: Spontaneous
  Country: RU (occurrence: RU)
  Receive Date: 20240812
  Receipt Date: 20240812
  Transmission Date: 20241016
  Serious: Yes (Death)
  Sender: FRESENIUS KABI
  Company Number: RU-FreseniusKabi-FK202412287

PATIENT
  Age: 19 Year
  Sex: Male

DRUGS (1)
  1. PROPOFOL [Suspect]
     Active Substance: PROPOFOL
     Indication: Sedation
     Dosage: FORM: INJECTION
     Route: 042

REACTIONS (1)
  - Bronchospasm [Fatal]
